FAERS Safety Report 5813192-4 (Version None)
Quarter: 2008Q3

REPORT INFORMATION
  Report Type: 
  Country: None (occurrence: None)
  Receive Date: 20080717
  Receipt Date: 20080408
  Transmission Date: 20090109
  Serious: No
  Sender: FDA-Public Use
  Company Number: A0721495A

PATIENT
  Age: 37 Year
  Sex: Female

DRUGS (1)
  1. NICORETTE [Suspect]
     Dates: start: 20080330, end: 20080406

REACTIONS (3)
  - PRURITUS [None]
  - SKIN IRRITATION [None]
  - URTICARIA [None]
